FAERS Safety Report 23482942 (Version 2)
Quarter: 2024Q1

REPORT INFORMATION
  Report Type: Spontaneous
  Country: IT (occurrence: IT)
  Receive Date: 20240205
  Receipt Date: 20240226
  Transmission Date: 20240410
  Serious: Yes (Death, Hospitalization, Other)
  Sender: FDA-Public Use
  Company Number: IT-TEVA-VS-3150466

PATIENT
  Age: 14 Year
  Sex: Male

DRUGS (6)
  1. FLUDARABINE [Suspect]
     Active Substance: FLUDARABINE PHOSPHATE
     Indication: Acute myeloid leukaemia
     Dosage: CYCLICAL
     Route: 065
  2. VENETOCLAX [Suspect]
     Active Substance: VENETOCLAX
     Indication: Acute myeloid leukaemia
     Dosage: STARTED AT A DOSE OF 100MG/DAY AND GRADUALLY INCREASED BY 100MG/DAY UP TO A DOSE OF 800 MG/DAY.
     Route: 065
  3. AZACITIDINE [Suspect]
     Active Substance: AZACITIDINE
     Indication: Acute myeloid leukaemia
     Route: 065
  4. CYTARABINE [Suspect]
     Active Substance: CYTARABINE
     Indication: Acute myeloid leukaemia
     Dosage: CYCLICAL
     Route: 065
  5. CYTARABINE [Suspect]
     Active Substance: CYTARABINE
     Indication: Acute myeloid leukaemia
     Dosage: LOW DOSE
     Route: 042
  6. THIOGUANINE [Suspect]
     Active Substance: THIOGUANINE
     Indication: Acute myeloid leukaemia
     Dosage: LOW-DOSE
     Route: 048

REACTIONS (10)
  - Therapy non-responder [Fatal]
  - Thrombocytopenia [Unknown]
  - Stomatitis [Unknown]
  - Diarrhoea [Unknown]
  - Stenotrophomonas infection [Unknown]
  - Oedema peripheral [Unknown]
  - Escherichia sepsis [Unknown]
  - Urticaria [Recovered/Resolved]
  - Staphylococcal sepsis [Unknown]
  - Fluid retention [Recovering/Resolving]
